FAERS Safety Report 12951616 (Version 1)
Quarter: 2016Q4

REPORT INFORMATION
  Report Type: Spontaneous
  Country: US (occurrence: US)
  Receive Date: 20161117
  Receipt Date: 20161117
  Transmission Date: 20170207
  Serious: No
  Sender: FDA-Public Use
  Company Number: US-NOVOPROD-484324

PATIENT
  Age: 73 Year
  Sex: Male

DRUGS (1)
  1. NOVOLOG [Suspect]
     Active Substance: INSULIN ASPART
     Indication: TYPE 2 DIABETES MELLITUS
     Dosage: 40 U, QD
     Route: 058
     Dates: start: 20160303

REACTIONS (5)
  - Presyncope [Recovered/Resolved]
  - Vomiting [Recovered/Resolved]
  - Blood glucose increased [Recovered/Resolved]
  - Diarrhoea [Recovered/Resolved]
  - Disturbance in attention [Recovered/Resolved]

NARRATIVE: CASE EVENT DATE: 20160303
